FAERS Safety Report 6576603-5 (Version None)
Quarter: 2010Q1

REPORT INFORMATION
  Report Type: 
  Country: None (occurrence: None)
  Receive Date: 20100210
  Receipt Date: 20100203
  Transmission Date: 20100710
  Serious: Yes (Life-Threatening, Hospitalization)
  Sender: FDA-Public Use
  Company Number: PHHY2009JP20876

PATIENT
  Sex: Female

DRUGS (10)
  1. VOLTAREN [Suspect]
     Indication: SPINAL OSTEOARTHRITIS
     Dosage: 50 MG/DAY
     Route: 054
     Dates: start: 20090307, end: 20090307
  2. VOLTAREN [Suspect]
     Indication: BACK PAIN
     Dosage: 50 MG/DAY
     Route: 054
     Dates: start: 20090328, end: 20090328
  3. FLOMOX [Suspect]
     Dosage: UNK
     Route: 048
     Dates: start: 20090328, end: 20090329
  4. CARBOCAIN [Concomitant]
     Indication: SPINAL OSTEOARTHRITIS
     Dosage: UNK
     Dates: start: 20090307, end: 20090328
  5. CARBOCAIN [Concomitant]
     Indication: BACK PAIN
     Dosage: UNK
     Dates: start: 20090328, end: 20090328
  6. DAIORIEL [Concomitant]
     Dosage: UNK
     Route: 048
     Dates: start: 20090328, end: 20090329
  7. AZULFIDINE [Concomitant]
     Dosage: 1000 MG, UNK
     Route: 048
     Dates: end: 20090329
  8. AMLODIPINE [Concomitant]
     Dosage: 5 MG, UNK
     Route: 048
     Dates: end: 20090329
  9. WARFARIN SODIUM [Concomitant]
     Dosage: 2 MG, UNK
     Route: 048
     Dates: end: 20090329
  10. HEPARIN [Concomitant]
     Dosage: UNK
     Route: 061
     Dates: end: 20090329

REACTIONS (21)
  - BLISTER [None]
  - BLOOD PRESSURE DECREASED [None]
  - BURNS SECOND DEGREE [None]
  - BURNS THIRD DEGREE [None]
  - CEREBRAL INFARCTION [None]
  - CONDITION AGGRAVATED [None]
  - DEHYDRATION [None]
  - DEPRESSED LEVEL OF CONSCIOUSNESS [None]
  - DISSEMINATED INTRAVASCULAR COAGULATION [None]
  - FALL [None]
  - HAEMORRHAGE SUBCUTANEOUS [None]
  - HYPERKALAEMIA [None]
  - MUSCULAR WEAKNESS [None]
  - ORAL MUCOSA EROSION [None]
  - PYREXIA [None]
  - RASH [None]
  - RENAL FAILURE [None]
  - SHOCK [None]
  - SKIN EXFOLIATION [None]
  - TOXIC EPIDERMAL NECROLYSIS [None]
  - URINE OUTPUT DECREASED [None]
